FAERS Safety Report 5673135-3 (Version None)
Quarter: 2008Q1

REPORT INFORMATION
  Report Type: 
  Country: None (occurrence: None)
  Receive Date: 20080319
  Receipt Date: 20080313
  Transmission Date: 20080703
  Serious: Yes (Other)
  Sender: FDA-Public Use
  Company Number: BE-AVENTIS-200721029GDDC

PATIENT
  Age: 37 Year
  Sex: Female
  Weight: 81 kg

DRUGS (2)
  1. DOCETAXEL [Suspect]
     Indication: BREAST CANCER
     Route: 042
     Dates: start: 20071107, end: 20071107
  2. XELODA [Suspect]
     Indication: BREAST CANCER
     Dosage: DOSE: 825 MG/M2 2X/DAY FROM DAY 1-14
     Route: 048
     Dates: start: 20071108, end: 20071108

REACTIONS (1)
  - CORNEAL EROSION [None]
